FAERS Safety Report 10021385 (Version 1)
Quarter: 2014Q1

REPORT INFORMATION
  Report Type: Spontaneous
  Country: FR (occurrence: FR)
  Receive Date: 20140319
  Receipt Date: 20140319
  Transmission Date: 20141002
  Serious: Yes (Other)
  Sender: FDA-Public Use
  Company Number: FR-ROCHE-1364307

PATIENT
  Age: 11 Year
  Sex: Male

DRUGS (6)
  1. RIVOTRIL [Suspect]
     Indication: NEURALGIA
     Route: 048
     Dates: start: 20140115, end: 20140213
  2. RIVOTRIL [Suspect]
     Route: 048
     Dates: start: 20140214, end: 20140221
  3. NEURONTIN (FRANCE) [Suspect]
     Indication: NEURALGIA
     Route: 048
     Dates: start: 20140214, end: 20140218
  4. NEURONTIN (FRANCE) [Suspect]
     Route: 048
     Dates: start: 20140219, end: 20140221
  5. NEURONTIN (FRANCE) [Suspect]
     Route: 048
     Dates: start: 20140222, end: 20140225
  6. PARACETAMOL [Concomitant]
     Route: 065

REACTIONS (2)
  - Apathy [Recovered/Resolved]
  - Suicidal ideation [Recovered/Resolved]
